FAERS Safety Report 10056240 (Version 2)
Quarter: 2014Q2

REPORT INFORMATION
  Report Type: Spontaneous
  Country: US (occurrence: US)
  Receive Date: 20140403
  Receipt Date: 20140417
  Transmission Date: 20141212
  Serious: Yes (Other)
  Sender: FDA-Public Use
  Company Number: US-PFIZER INC-2014091798

PATIENT
  Age: 54 Year
  Sex: Female
  Weight: 72.56 kg

DRUGS (6)
  1. CELEBREX [Suspect]
     Indication: PAIN
     Dosage: 200 MG, 1X/DAY
     Route: 048
  2. LEXAPRO [Concomitant]
     Indication: DEPRESSION
     Dosage: UNK
  3. LYRICA [Concomitant]
     Indication: FIBROMYALGIA
     Dosage: UNK
  4. TRAMADOL [Concomitant]
     Indication: PAIN
     Dosage: UNK
  5. TEMAZEPAM [Concomitant]
     Indication: SLEEP DISORDER
     Dosage: UNK
  6. REQUIP [Concomitant]
     Indication: MUSCLE SPASMS
     Dosage: UNK

REACTIONS (2)
  - Malignant melanoma [Unknown]
  - Aphonia [Unknown]
